FAERS Safety Report 9119366 (Version 3)
Quarter: 2013Q2

REPORT INFORMATION
  Report Type: Spontaneous
  Country: IT (occurrence: IT)
  Receive Date: 20130226
  Receipt Date: 20130425
  Transmission Date: 20140414
  Serious: Yes (Other)
  Sender: FDA-Public Use
  Company Number: IT-AMGEN-ITASP2013012949

PATIENT
  Age: 42 Year
  Sex: Female

DRUGS (7)
  1. ENBREL [Suspect]
     Indication: RHEUMATOID ARTHRITIS
     Dosage: 50 MG, WEEKLY
     Route: 058
     Dates: start: 20100701, end: 20110401
  2. HUMIRA [Suspect]
     Indication: RHEUMATOID ARTHRITIS
     Dosage: 80 MG, WEEKLY
     Route: 058
     Dates: start: 20110401, end: 20110701
  3. ROACTEMRA [Suspect]
     Indication: RHEUMATOID ARTHRITIS
     Dosage: 8 MG, MONTHLY
     Route: 042
     Dates: start: 20110901, end: 20120827
  4. HYDROCORTISONE ACETATE [Concomitant]
     Indication: RHEUMATOID ARTHRITIS
     Dosage: 4 MG, UNK
     Route: 030
     Dates: start: 20100101
  5. BRUFEN                             /00109201/ [Concomitant]
     Indication: RHEUMATOID ARTHRITIS
     Dosage: 600 MG, UNK
     Route: 048
     Dates: start: 20080101
  6. PANTOPRAZOLE [Concomitant]
     Dosage: 20 MG, 5 YEARS
  7. MEDROL                             /00049601/ [Concomitant]
     Indication: RHEUMATOID ARTHRITIS
     Dosage: 4 MG, 4 YEARS
     Route: 048
     Dates: start: 20090101

REACTIONS (4)
  - Melanocytic naevus [Unknown]
  - Skin neoplasm excision [Recovered/Resolved]
  - Rheumatoid arthritis [Unknown]
  - Malignant melanoma [Recovered/Resolved]
